FAERS Safety Report 16781035 (Version 1)
Quarter: 2019Q3

REPORT INFORMATION
  Report Type: Spontaneous
  Country: US (occurrence: US)
  Receive Date: 20190717
  Receipt Date: 20190717
  Transmission Date: 20191005
  Serious: No
  Sender: FDA-Public Use
  Company Number: None

PATIENT
  Age: 76 Year
  Sex: Female

DRUGS (1)
  1. METHOTREXATE  INJ MDV [Suspect]
     Active Substance: METHOTREXATE
     Dates: start: 20170118

REACTIONS (2)
  - Wrong technique in device usage process [None]
  - Product use issue [None]

NARRATIVE: CASE EVENT DATE: 20181115
